FAERS Safety Report 5859231-6 (Version None)
Quarter: 2008Q3

REPORT INFORMATION
  Report Type: 
  Country: None (occurrence: None)
  Receive Date: 20080825
  Receipt Date: 20060816
  Transmission Date: 20090109
  Serious: Yes (Hospitalization, Other)
  Sender: FDA-Public Use
  Company Number: PAR_02309_2008

PATIENT
  Age: 68 Year
  Sex: Female

DRUGS (4)
  1. IBUPROFEN TABLETS [Suspect]
     Indication: INFLUENZA LIKE ILLNESS
     Dosage: 400 MG 1X ORAL
     Route: 048
  2. IBUPROFEN TABLETS [Suspect]
     Indication: CYSTITIS
     Dosage: 600 MG 1X ORAL
     Route: 048
  3. IBUPROFEN TABLETS [Suspect]
     Indication: ALLERGY TEST
     Dosage: 50 MG 1X ORAL, 100 MG 1X ORAL
     Route: 048
  4. IBUPROFEN TABLETS [Suspect]
     Indication: ALLERGY TEST
     Dosage: 200 MG 2X 30 MINUTES APART ORAL
     Route: 048

REACTIONS (9)
  - BODY TEMPERATURE INCREASED [None]
  - CHILLS [None]
  - CYSTITIS [None]
  - HYPOTENSION [None]
  - MALAISE [None]
  - MENINGITIS ASEPTIC [None]
  - NAUSEA [None]
  - SOMNOLENCE [None]
  - VOMITING [None]
